FAERS Safety Report 6557722-6 (Version None)
Quarter: 2010Q1

REPORT INFORMATION
  Report Type: 
  Country: None (occurrence: None)
  Receive Date: 20100129
  Receipt Date: 20100120
  Transmission Date: 20100710
  Serious: Yes (Other)
  Sender: FDA-Public Use
  Company Number: US-SANOFI-AVENTIS-2009SA008503

PATIENT
  Age: 68 Year
  Sex: Female
  Weight: 98.4 kg

DRUGS (8)
  1. MULTAQ [Suspect]
     Route: 048
     Dates: start: 20091202, end: 20091211
  2. AMIODARONE [Concomitant]
     Dates: start: 20080501, end: 20091127
  3. LORATADINE [Concomitant]
  4. TAPAZOLE [Concomitant]
     Indication: HYPERTHYROIDISM
     Dosage: DOSE:5 UNIT(S)
  5. WELLBUTRIN [Concomitant]
     Dosage: DOSE:150 UNIT(S)
  6. WARFARIN SODIUM [Concomitant]
     Dates: end: 20091101
  7. WARFARIN SODIUM [Concomitant]
     Dates: start: 20091201
  8. HYDROCHLOROTHIAZIDE [Concomitant]
     Dosage: DOSE:25 UNIT(S)
     Dates: end: 20091201

REACTIONS (7)
  - BRAIN NATRIURETIC PEPTIDE INCREASED [None]
  - CARDIAC FAILURE [None]
  - CONDITION AGGRAVATED [None]
  - COUGH [None]
  - DYSPNOEA [None]
  - HEART RATE IRREGULAR [None]
  - OEDEMA [None]
